FAERS Safety Report 23737923 (Version 3)
Quarter: 2024Q2

REPORT INFORMATION
  Report Type: Spontaneous
  Country: US (occurrence: US)
  Receive Date: 20240412
  Receipt Date: 20240508
  Transmission Date: 20240716
  Serious: No
  Sender: FDA-Public Use
  Company Number: US-BIOVITRUM-2024-US-005478

PATIENT
  Age: 55 Year
  Sex: Male

DRUGS (4)
  1. VONJO [Suspect]
     Active Substance: PACRITINIB
     Indication: Myelofibrosis
     Dosage: 200 MG TWICE DAILY
     Route: 048
  2. VALSARTAN [Concomitant]
     Active Substance: VALSARTAN
     Indication: Product used for unknown indication
  3. VIAGRA [Concomitant]
     Active Substance: SILDENAFIL CITRATE
     Indication: Product used for unknown indication
  4. ZYRTEC-D [Concomitant]
     Active Substance: CETIRIZINE HYDROCHLORIDE\PSEUDOEPHEDRINE HYDROCHLORIDE
     Indication: Product used for unknown indication

REACTIONS (11)
  - Peripheral swelling [Unknown]
  - Red blood cell count decreased [Unknown]
  - Disease progression [Unknown]
  - Bowel movement irregularity [Unknown]
  - Anxiety [Unknown]
  - Insomnia [Unknown]
  - Accidental exposure to product [Unknown]
  - Oesophageal pain [Recovered/Resolved]
  - Dyspnoea [Recovered/Resolved]
  - Haemoptysis [Recovered/Resolved]
  - Anaemia [Unknown]
